FAERS Safety Report 10170196 (Version 1)
Quarter: 2014Q2

REPORT INFORMATION
  Report Type: Spontaneous
  Country: US (occurrence: US)
  Receive Date: 20140513
  Receipt Date: 20140513
  Transmission Date: 20141212
  Serious: Yes (Hospitalization)
  Sender: FDA-Public Use
  Company Number: US-ACTAVIS-2014-09868

PATIENT
  Age: 36 Year
  Sex: Female
  Weight: 53 kg

DRUGS (3)
  1. PHENYTOIN (AMALLC) [Suspect]
     Indication: CONVULSION
     Dosage: UNKNOWN
     Route: 065
  2. DIVALPROEX SODIUM DR (WATSON LABORATORIES) [Suspect]
     Indication: CONVULSION
     Dosage: 250 MG, BID
     Route: 048
  3. PHENOBARBITAL (UNKNOWN) [Suspect]
     Indication: CONVULSION
     Dosage: 30 MG, TID
     Route: 065

REACTIONS (3)
  - Drug reaction with eosinophilia and systemic symptoms [Unknown]
  - Acute hepatic failure [Unknown]
  - Cross sensitivity reaction [Unknown]
